FAERS Safety Report 5348344-3 (Version None)
Quarter: 2007Q2

REPORT INFORMATION
  Report Type: 
  Country: None (occurrence: None)
  Receive Date: 20070605
  Receipt Date: 20070518
  Transmission Date: 20071010
  Serious: Yes (Hospitalization, Other)
  Sender: FDA-Public Use
  Company Number: 2007RR-06406

PATIENT
  Age: 8 Year
  Sex: Male

DRUGS (2)
  1. IBUPROFEN [Suspect]
     Indication: VIRAEMIA
     Dosage: 200 MG, TID, ORAL
     Route: 048
  2. ACETAMINOPHEN [Suspect]
     Indication: VIRAEMIA
     Dosage: 500 MG, QID,

REACTIONS (23)
  - ABDOMINAL RIGIDITY [None]
  - ANURIA [None]
  - APPENDICITIS [None]
  - BACK PAIN [None]
  - BLOOD CREATININE INCREASED [None]
  - BREATH SOUNDS ABNORMAL [None]
  - HAEMATURIA [None]
  - LUNG CONSOLIDATION [None]
  - MALAISE [None]
  - OEDEMA PERIPHERAL [None]
  - PERITONEAL DISORDER [None]
  - PERITONITIS [None]
  - PYELECTASIA [None]
  - RASH MACULAR [None]
  - RENAL DISORDER [None]
  - RENAL PAPILLARY NECROSIS [None]
  - SOMNOLENCE [None]
  - URETERIC OBSTRUCTION [None]
  - URETERIC STENOSIS [None]
  - URETHRAL HAEMORRHAGE [None]
  - URINE OUTPUT DECREASED [None]
  - VIRAEMIA [None]
  - VOMITING [None]
